FAERS Safety Report 7103890-7 (Version None)
Quarter: 2010Q4

REPORT INFORMATION
  Report Type: 
  Country: None (occurrence: None)
  Receive Date: 20101115
  Receipt Date: 20101108
  Transmission Date: 20110411
  Serious: Yes (Death, Other)
  Sender: FDA-Public Use
  Company Number: PHHY2010US73665

PATIENT
  Sex: Female
  Weight: 80.272 kg

DRUGS (12)
  1. EXJADE [Suspect]
     Indication: SERUM FERRITIN INCREASED
     Dosage: 2000 MG /DAILY
     Route: 048
     Dates: start: 20090316
  2. BENADRYL [Concomitant]
     Dosage: 50 MG DAILY
  3. DECADRON [Concomitant]
     Dosage: 4 MG, BID
  4. GABAPENTIN [Concomitant]
     Dosage: 300 MG, TID
  5. GLIPIZIDE [Concomitant]
     Dosage: 10 MG DAILY
  6. IBUPROFEN [Concomitant]
     Dosage: 200-800 MG DAILY
  7. LORAZEPAM [Concomitant]
     Route: 048
  8. MULTI-VITAMINS [Concomitant]
     Dosage: 1 TABLET DAILY
  9. POTASSIUM CHLORIDE [Concomitant]
     Dosage: 20 MEQ, BID
  10. PREDNISONE [Concomitant]
  11. VICODIN [Concomitant]
     Dosage: 5/500 UNK, PRN
  12. ZOMETA [Concomitant]
     Dosage: MONTHLY
     Route: 042

REACTIONS (10)
  - ANAEMIA [None]
  - BLOOD CALCIUM INCREASED [None]
  - DEATH [None]
  - DYSPNOEA [None]
  - FATIGUE [None]
  - MALIGNANT NEOPLASM PROGRESSION [None]
  - PAIN [None]
  - PALLIATIVE CARE [None]
  - PLEURAL EFFUSION [None]
  - THROMBOCYTOPENIA [None]
